FAERS Safety Report 5714317-1 (Version None)
Quarter: 2008Q2

REPORT INFORMATION
  Report Type: 
  Country: None (occurrence: None)
  Receive Date: 20080422
  Receipt Date: 20080422
  Transmission Date: 20081010
  Serious: Yes (Other)
  Sender: FDA-Public Use
  Company Number: None

PATIENT
  Age: 28 Year
  Sex: Male

DRUGS (1)
  1. REMBRANDT DAILY WHITENING GEL (DISC.) [Suspect]
     Indication: DENTAL TREATMENT
     Dosage: 060 ORAL
     Route: 048
     Dates: start: 20070501, end: 20070501

REACTIONS (4)
  - CHEILITIS [None]
  - GINGIVAL PAIN [None]
  - STOMATITIS [None]
  - TOOTH FRACTURE [None]
